FAERS Safety Report 9605658 (Version 2)
Quarter: 2013Q4

REPORT INFORMATION
  Report Type: Report from Study
  Country: BR (occurrence: BR)
  Receive Date: 20131008
  Receipt Date: 20131101
  Transmission Date: 20140711
  Serious: Yes (Hospitalization, Other)
  Sender: FDA-Public Use
  Company Number: PHHY2013BR111623

PATIENT
  Sex: Female

DRUGS (2)
  1. DIOVAN [Suspect]
     Dosage: MATERNAL DOSE 1 DF (320 MG) DAILY
     Route: 064
  2. MULTIVITAMINS W/MINERALS [Concomitant]
     Dosage: MATERNAL DOSE: 1 DF PER DAY
     Route: 064

REACTIONS (5)
  - Premature baby [Recovered/Resolved]
  - Inguinal hernia [Recovered/Resolved]
  - Retinopathy of prematurity [Recovered/Resolved]
  - Low birth weight baby [Unknown]
  - Foetal exposure during pregnancy [Unknown]
